FAERS Safety Report 22646602 (Version 1)
Quarter: 2023Q2

REPORT INFORMATION
  Report Type: Spontaneous
  Country: US (occurrence: US)
  Receive Date: 20230627
  Receipt Date: 20230627
  Transmission Date: 20230722
  Serious: Yes (Hospitalization, Other)
  Sender: FDA-Public Use
  Company Number: US-GLAXOSMITHKLINE-US2023GSK087300

PATIENT

DRUGS (1)
  1. BUPROPION [Suspect]
     Active Substance: BUPROPION
     Indication: Antipsychotic therapy
     Dosage: UNK
     Route: 048

REACTIONS (9)
  - Cardiogenic shock [Unknown]
  - Overdose [Unknown]
  - Cardiac failure [Unknown]
  - Ventricular tachycardia [Unknown]
  - Arrhythmic storm [Unknown]
  - Ventricular hypokinesia [Recovering/Resolving]
  - Atrial fibrillation [Unknown]
  - Tachycardia [Unknown]
  - Bundle branch block left [Unknown]
